FAERS Safety Report 6087279-8 (Version None)
Quarter: 2009Q1

REPORT INFORMATION
  Report Type: 
  Country: None (occurrence: None)
  Receive Date: 20090223
  Receipt Date: 20090217
  Transmission Date: 20090719
  Serious: Yes (Hospitalization)
  Sender: FDA-Public Use
  Company Number: A0718451A

PATIENT
  Age: 66 Year
  Sex: Male

DRUGS (5)
  1. AVANDIA [Suspect]
     Dosage: 6MG PER DAY
     Route: 048
     Dates: start: 20020612, end: 20040308
  2. GLUCOPHAGE [Concomitant]
     Dates: start: 20000101, end: 20040301
  3. ACCUPRIL [Concomitant]
  4. LASIX [Concomitant]
  5. LIPITOR [Concomitant]

REACTIONS (1)
  - MYOCARDIAL INFARCTION [None]
